FAERS Safety Report 10871343 (Version 1)
Quarter: 2015Q1

REPORT INFORMATION
  Report Type: Spontaneous
  Country: US (occurrence: US)
  Receive Date: 20150226
  Receipt Date: 20150226
  Transmission Date: 20150721
  Serious: No
  Sender: FDA-Public Use
  Company Number: US-ELI_LILLY_AND_COMPANY-US201502005787

PATIENT
  Age: 67 Year
  Sex: Female

DRUGS (1)
  1. FORTEO [Suspect]
     Active Substance: TERIPARATIDE
     Indication: PRODUCT USED FOR UNKNOWN INDICATION
     Dosage: 20 UG, UNKNOWN
     Route: 065
     Dates: start: 20141212, end: 20150212

REACTIONS (5)
  - Fatigue [Unknown]
  - Nausea [Unknown]
  - Muscular weakness [Unknown]
  - Myalgia [Unknown]
  - Dizziness [Unknown]

NARRATIVE: CASE EVENT DATE: 20141226
